FAERS Safety Report 18312668 (Version 1)
Quarter: 2020Q3

REPORT INFORMATION
  Report Type: Report from Study
  Country: None (occurrence: US)
  Receive Date: 20200925
  Receipt Date: 20200925
  Transmission Date: 20201103
  Serious: Yes (Other)
  Sender: FDA-Public Use
  Company Number: US-ABBVIE-20K-163-3580183-00

PATIENT
  Sex: Male

DRUGS (2)
  1. VENCLEXTA [Suspect]
     Active Substance: VENETOCLAX
     Indication: ACUTE MYELOID LEUKAEMIA
     Route: 048
     Dates: start: 202006, end: 2020
  2. VENCLEXTA [Suspect]
     Active Substance: VENETOCLAX
     Dosage: REDUCED DOSE NOW OF 200MG QD FOR 14 DAYS ON, AND 14 DAYS OFF
     Route: 048
     Dates: start: 2020

REACTIONS (8)
  - Gait disturbance [Not Recovered/Not Resolved]
  - Papule [Not Recovered/Not Resolved]
  - Platelet transfusion [Not Recovered/Not Resolved]
  - Dyspnoea exertional [Not Recovered/Not Resolved]
  - White blood cell count decreased [Not Recovered/Not Resolved]
  - Neutropenia [Not Recovered/Not Resolved]
  - Arthropathy [Not Recovered/Not Resolved]
  - Asthenia [Not Recovered/Not Resolved]

NARRATIVE: CASE EVENT DATE: 2020
